FAERS Safety Report 8885711 (Version 2)
Quarter: 2012Q4

REPORT INFORMATION
  Report Type: 
  Country: CN (occurrence: CN)
  Receive Date: 20121102
  Receipt Date: 20121105
  Transmission Date: 20130627
  Serious: Yes (Death, Other)
  Sender: FDA-Public Use
  Company Number: CN-PFIZER INC-2012273206

PATIENT
  Age: 64 Year
  Sex: Female

DRUGS (1)
  1. SUTENT [Suspect]
     Indication: RENAL CELL CANCER
     Dosage: UNK
     Dates: start: 2012

REACTIONS (3)
  - Death [Fatal]
  - Asphyxia [Unknown]
  - Asthenia [Unknown]
